FAERS Safety Report 17599686 (Version 1)
Quarter: 2020Q1

REPORT INFORMATION
  Report Type: Spontaneous
  Country: US (occurrence: US)
  Receive Date: 20200330
  Receipt Date: 20200330
  Transmission Date: 20200409
  Serious: Yes (Other)
  Sender: FDA-Public Use
  Company Number: None

PATIENT
  Age: 69 Year
  Sex: Female
  Weight: 78.3 kg

DRUGS (12)
  1. NOVOLIN R 100U/ML [Concomitant]
  2. LEVEMIR 100U/ML [Concomitant]
  3. LEVOTHYROXINE SODIUM 100MCG [Concomitant]
  4. VITAMIN D 50MCG [Concomitant]
  5. LISINOPRIL. [Concomitant]
     Active Substance: LISINOPRIL
  6. METFORMIN 500MG [Concomitant]
     Active Substance: METFORMIN HYDROCHLORIDE
  7. CAPECITABINE. [Suspect]
     Active Substance: CAPECITABINE
     Indication: BREAST CANCER
     Route: 048
     Dates: start: 20200311
  8. MAGNESIUM 300MG [Concomitant]
  9. GLIPIZIDE XL 2.5MG [Concomitant]
  10. SIMVASTATIN 5MG [Concomitant]
  11. VITAMIN B6 50MG [Concomitant]
  12. FENOFIBRATE 54MG [Concomitant]

REACTIONS (2)
  - Erythema [None]
  - Diarrhoea [None]

NARRATIVE: CASE EVENT DATE: 20200330
